FAERS Safety Report 7736595-X (Version None)
Quarter: 2011Q3

REPORT INFORMATION
  Report Type: 
  Country: None (occurrence: None)
  Receive Date: 20110908
  Receipt Date: 20110722
  Transmission Date: 20111222
  Serious: No
  Sender: FDA-Public Use
  Company Number: US-BAYER-00/03347-USE

PATIENT
  Age: 29 Year
  Sex: Female

DRUGS (4)
  1. BETASERON [Suspect]
     Indication: RELAPSING-REMITTING MULTIPLE SCLEROSIS
     Dosage: 8 MIU QOD
     Route: 058
     Dates: start: 20000605
  2. BETASERON [Suspect]
     Dosage: 8 MIU, QOD
     Route: 058
     Dates: start: 20110721
  3. BETASERON [Suspect]
     Dosage: UNK
     Route: 058
     Dates: start: 20000512, end: 20090201
  4. IBUPROFEN [Concomitant]

REACTIONS (4)
  - PAIN [None]
  - HEADACHE [None]
  - CHILLS [None]
  - INJECTION SITE ERYTHEMA [None]
